FAERS Safety Report 10347918 (Version 1)
Quarter: 2014Q3

REPORT INFORMATION
  Report Type: Spontaneous
  Country: US (occurrence: None)
  Receive Date: 20140725
  Receipt Date: 20140725
  Transmission Date: 20150326
  Serious: Yes (Hospitalization, Other)
  Sender: FDA-Public Use
  Company Number: UNT-2014-003388

PATIENT
  Age: 71 Year
  Sex: Female
  Weight: 63.5 kg

DRUGS (6)
  1. TYVASO [Suspect]
     Active Substance: TREPROSTINIL
     Indication: COR PULMONALE CHRONIC
     Route: 055
     Dates: start: 20140327
  2. LETAIRIS [Concomitant]
     Active Substance: AMBRISENTAN
  3. COUMADIN [Concomitant]
     Active Substance: WARFARIN SODIUM
  4. REVATIO (SILDENAFIL CITRATE) [Concomitant]
  5. TYVASO [Suspect]
     Active Substance: TREPROSTINIL
     Indication: PULMONARY HYPERTENSION
     Route: 055
     Dates: start: 20140327
  6. ORENITRAM [Suspect]
     Active Substance: TREPROSTINIL
     Indication: PRODUCT USED FOR UNKNOWN INDICATION
     Route: 048

REACTIONS (8)
  - Scleroderma [None]
  - Oedema mouth [None]
  - Hypoaesthesia [None]
  - Decreased appetite [None]
  - Oral mucosal blistering [None]
  - Pain in jaw [None]
  - Weight decreased [None]
  - Herpes zoster [None]

NARRATIVE: CASE EVENT DATE: 20140624
